FAERS Safety Report 16764577 (Version 1)
Quarter: 2019Q3

REPORT INFORMATION
  Report Type: Spontaneous
  Country: IN (occurrence: IN)
  Receive Date: 20190902
  Receipt Date: 20190902
  Transmission Date: 20191005
  Serious: Yes (Death, Hospitalization)
  Sender: FDA-Public Use
  Company Number: PHHY2019IN203265

PATIENT
  Age: 44 Year
  Sex: Male

DRUGS (4)
  1. DOXYCYCLINE. [Suspect]
     Active Substance: DOXYCYCLINE
     Indication: ROCKY MOUNTAIN SPOTTED FEVER
     Route: 065
  2. ACICLOVIR [Suspect]
     Active Substance: ACYCLOVIR
     Indication: ENCEPHALITIS VIRAL
     Route: 065
  3. MEROPENEM. [Suspect]
     Active Substance: MEROPENEM
     Indication: ANTIBIOTIC THERAPY
     Route: 065
  4. MONOCEF [CEFONICID SODIUM] [Suspect]
     Active Substance: CEFONICID SODIUM
     Indication: ANTIBIOTIC THERAPY
     Route: 065

REACTIONS (8)
  - Sepsis [Fatal]
  - Hypotension [Unknown]
  - Bradycardia [Unknown]
  - Pyrexia [Fatal]
  - Rocky mountain spotted fever [Fatal]
  - Cardiac arrest [Unknown]
  - Multiple organ dysfunction syndrome [Fatal]
  - Rickettsiosis [Fatal]
